FAERS Safety Report 25648681 (Version 1)
Quarter: 2025Q3

REPORT INFORMATION
  Report Type: Spontaneous
  Country: GB (occurrence: GB)
  Receive Date: 20250806
  Receipt Date: 20250806
  Transmission Date: 20251021
  Serious: Yes (Other)
  Sender: GLAXOSMITHKLINE
  Company Number: GB-GSK-GB2025094916

PATIENT

DRUGS (2)
  1. MOMELOTINIB [Suspect]
     Active Substance: MOMELOTINIB
     Indication: Myelofibrosis
     Dosage: 150 MG, QD
  2. MOMELOTINIB [Suspect]
     Active Substance: MOMELOTINIB
     Dosage: 100 MG, QD

REACTIONS (1)
  - Acute kidney injury [Not Recovered/Not Resolved]
